FAERS Safety Report 7042629-0 (Version None)
Quarter: 2010Q4

REPORT INFORMATION
  Report Type: 
  Country: None (occurrence: None)
  Receive Date: 20101007
  Receipt Date: 20100923
  Transmission Date: 20110411
  Serious: Yes (Death)
  Sender: FDA-Public Use
  Company Number: 2010090062

PATIENT
  Age: 51 Year
  Sex: Female

DRUGS (7)
  1. ONSOLIS [Suspect]
     Dosage: TITRATE UP TO 4-200 MCG FILMS (UP TO 4 DOSES/DAY), BU; 2400 MCG (600 MCG, 1 IN 6 HR), BU
     Route: 002
     Dates: start: 20100728, end: 20100826
  2. ONSOLIS [Suspect]
     Dosage: TITRATE UP TO 4-200 MCG FILMS (UP TO 4 DOSES/DAY), BU; 2400 MCG (600 MCG, 1 IN 6 HR), BU
     Route: 002
     Dates: start: 20100827
  3. KADIAN [Concomitant]
  4. MORPHINE [Concomitant]
  5. TIZANIDINE HCL [Concomitant]
  6. ALLOPURINOL [Concomitant]
  7. COLCHICINE (COLCHICINE) [Concomitant]

REACTIONS (1)
  - DEATH [None]
